FAERS Safety Report 8924830 (Version 2)
Quarter: 2015Q4

REPORT INFORMATION
  Report Type: Spontaneous
  Country: US (occurrence: US)
  Receive Date: 20121126
  Receipt Date: 20151027
  Transmission Date: 20160305
  Serious: Yes (Other)
  Sender: FDA-Public Use
  Company Number: US-BAYER-2012-121426

PATIENT
  Age: 25 Year
  Sex: Female
  Weight: 82.09 kg

DRUGS (10)
  1. COLACE [Concomitant]
     Active Substance: DOCUSATE SODIUM
     Indication: CONSTIPATION
     Dosage: 50 MG/5 ML, PRN
     Route: 048
     Dates: start: 20120514
  2. MUCINEX DM [Concomitant]
     Active Substance: DEXTROMETHORPHAN HYDROBROMIDE\GUAIFENESIN
     Indication: MULTIPLE ALLERGIES
     Dosage: 600 MG - 30 MG, BID
     Route: 048
     Dates: start: 20120522
  3. ACETAMINOPHEN W/HYDROCODONE [Concomitant]
     Active Substance: ACETAMINOPHEN\HYDROCODONE
  4. CYCLOBENZAPRINE HYDROCHLORIDE. [Concomitant]
     Active Substance: CYCLOBENZAPRINE HYDROCHLORIDE
     Indication: MUSCLE SPASMS
     Dosage: 10 MG, EVERY NIGHT
     Route: 048
     Dates: start: 20120510
  5. LORTAB [Concomitant]
     Active Substance: ACETAMINOPHEN\HYDROCODONE BITARTRATE
     Indication: PAIN
     Dosage: 2.5 - 167 MG/5 ML, PRN
     Route: 048
     Dates: start: 20120514
  6. LORTAB [Concomitant]
     Active Substance: ACETAMINOPHEN\HYDROCODONE BITARTRATE
     Indication: PAIN
     Dosage: 5 ML, PRN
     Route: 048
     Dates: start: 20120514
  7. YAZ [Suspect]
     Active Substance: DROSPIRENONE\ETHINYL ESTRADIOL
     Indication: CONTRACEPTION
  8. IBUPROFEN. [Concomitant]
     Active Substance: IBUPROFEN
     Indication: MUSCULOSKELETAL PAIN
     Dosage: 800 MG, BID
     Route: 048
     Dates: start: 20120510
  9. DOCUSATE [Concomitant]
     Active Substance: DOCUSATE
  10. COLACE [Concomitant]
     Active Substance: DOCUSATE SODIUM
     Indication: CONSTIPATION
     Dosage: 5 ML, PRN
     Route: 048
     Dates: start: 20120514

REACTIONS (4)
  - Pulmonary embolism [None]
  - Pelvic venous thrombosis [None]
  - Thrombophlebitis superficial [None]
  - Deep vein thrombosis [None]

NARRATIVE: CASE EVENT DATE: 20120610
